FAERS Safety Report 5906768-7 (Version None)
Quarter: 2008Q3

REPORT INFORMATION
  Report Type: 
  Country: None (occurrence: None)
  Receive Date: 20080930
  Receipt Date: 20080915
  Transmission Date: 20090109
  Serious: Yes (Other)
  Sender: FDA-Public Use
  Company Number: 2008S1016862

PATIENT
  Age: 59 Year
  Sex: Female

DRUGS (2)
  1. PRAZOSIN HYDROCHLORIDE [Suspect]
     Indication: BLOOD PRESSURE
     Dosage: 0.5 MG; TWICE A DAY; ORAL
     Route: 048
     Dates: start: 20080902, end: 20080905
  2. CARTIA XT [Concomitant]

REACTIONS (7)
  - BLOOD PRESSURE SYSTOLIC INCREASED [None]
  - CONFUSIONAL STATE [None]
  - DIZZINESS [None]
  - FATIGUE [None]
  - MUSCULAR WEAKNESS [None]
  - PALPITATIONS [None]
  - SPEECH DISORDER [None]
